FAERS Safety Report 10239618 (Version 1)
Quarter: 2014Q2

REPORT INFORMATION
  Report Type: Spontaneous
  Country: DE (occurrence: None)
  Receive Date: 20140612
  Receipt Date: 20140612
  Transmission Date: 20141212
  Serious: Yes (Other)
  Sender: FDA-Public Use
  Company Number: AUR-APL-2014-06301

PATIENT
  Age: 47 Year
  Sex: Male

DRUGS (2)
  1. RISPERDONE 4MG 1 HS [Suspect]
     Indication: PRODUCT USED FOR UNKNOWN INDICATION
  2. MIRTAZAPINE (MIRTAZAPINE) [Suspect]
     Indication: PRODUCT USED FOR UNKNOWN INDICATION

REACTIONS (1)
  - Hallucination, auditory [None]
